FAERS Safety Report 6048618-7 (Version None)
Quarter: 2009Q1

REPORT INFORMATION
  Report Type: 
  Country: None (occurrence: None)
  Receive Date: 20090123
  Receipt Date: 20090108
  Transmission Date: 20090719
  Serious: Yes (Hospitalization)
  Sender: FDA-Public Use
  Company Number: AU-BAUSCH-2009BL000125

PATIENT
  Age: 79 Year
  Sex: Female

DRUGS (4)
  1. TOBRAMYCIN [Suspect]
     Route: 047
  2. PHENYLEPHRINE HYDROCHLORIDE [Concomitant]
     Route: 047
  3. PREDNISOLONE ACETATE [Concomitant]
     Route: 047
  4. CEFAZOLIN [Concomitant]
     Route: 047

REACTIONS (3)
  - BRONCHOSPASM [None]
  - DYSPNOEA [None]
  - WHEEZING [None]
